FAERS Safety Report 6094137-1 (Version None)
Quarter: 2009Q1

REPORT INFORMATION
  Report Type: 
  Country: None (occurrence: None)
  Receive Date: 20090224
  Receipt Date: 20090224
  Transmission Date: 20090719
  Serious: Yes (Other)
  Sender: FDA-Public Use
  Company Number: None

PATIENT
  Sex: Female
  Weight: 79.3795 kg

DRUGS (1)
  1. LEVOFLOXACIN [Suspect]
     Indication: CHRONIC SINUSITIS
     Dosage: 500MG ONE DAILY PO
     Route: 048
     Dates: start: 20090209, end: 20090222

REACTIONS (4)
  - ARTHRALGIA [None]
  - JOINT SWELLING [None]
  - MOVEMENT DISORDER [None]
  - MUSCULOSKELETAL PAIN [None]
